FAERS Safety Report 18052536 (Version 2)
Quarter: 2020Q3

REPORT INFORMATION
  Report Type: Report from Study
  Country: US (occurrence: US)
  Receive Date: 20200722
  Receipt Date: 20200801
  Transmission Date: 20201103
  Serious: Yes (Other)
  Sender: FDA-Public Use
  Company Number: US-AUROBINDO-AUR-APL-2020-035572

PATIENT
  Age: 47 Year
  Sex: Male

DRUGS (5)
  1. AMFETAMINE;DEXAMFETAMINE [Concomitant]
     Indication: PRODUCT USED FOR UNKNOWN INDICATION
     Dosage: 20 MILLIGRAM, 3 TIMES A DAY
     Route: 065
  2. QUETIAPINE. [Suspect]
     Active Substance: QUETIAPINE
     Indication: AFFECTIVE DISORDER
     Dosage: 300 MILLIGRAM, ONCE A DAY (EVERY BEDTIME)
     Route: 065
  3. QUETIAPINE. [Suspect]
     Active Substance: QUETIAPINE
     Indication: BIPOLAR II DISORDER
  4. DULOXETINE. [Concomitant]
     Active Substance: DULOXETINE
     Indication: BIPOLAR II DISORDER
     Dosage: 120 MILLIGRAM, ONCE A DAY
     Route: 065
  5. DIVALPROEX SODIUM. [Concomitant]
     Active Substance: DIVALPROEX SODIUM
     Indication: BIPOLAR II DISORDER
     Dosage: 2000 MILLIGRAM, ONCE A DAY (EVERY BEDTIME)
     Route: 065

REACTIONS (5)
  - Choking [Unknown]
  - Weight increased [Unknown]
  - Somnambulism [Recovered/Resolved]
  - Sleep-related eating disorder [Recovered/Resolved]
  - Restless legs syndrome [Recovered/Resolved]
